FAERS Safety Report 18993080 (Version 1)
Quarter: 2021Q1

REPORT INFORMATION
  Report Type: Spontaneous
  Country: US (occurrence: US)
  Receive Date: 20210310
  Receipt Date: 20210310
  Transmission Date: 20210420
  Serious: Yes (Other)
  Sender: FDA-Public Use
  Company Number: US-GLAXOSMITHKLINE-US2021GSK050673

PATIENT
  Sex: Male

DRUGS (13)
  1. ZANTAC [Suspect]
     Active Substance: RANITIDINE HYDROCHLORIDE
     Dosage: 75 MG,(3?4 TIMES A WEEK)
     Route: 065
     Dates: start: 199501, end: 201701
  2. ZANTAC [Suspect]
     Active Substance: RANITIDINE HYDROCHLORIDE
     Dosage: 150 MG(3?4 TIMES A WEEK)
     Route: 065
     Dates: start: 199501, end: 201701
  3. RANITIDINE. [Suspect]
     Active Substance: RANITIDINE
     Dosage: 150 MG(3?4 TIMES A WEEK)
     Route: 065
     Dates: start: 200401, end: 201701
  4. RANITIDINE CAPSULE [Suspect]
     Active Substance: RANITIDINE
     Dosage: 150 MG (3?4 TIMES A WEEK)
     Route: 065
     Dates: start: 200401, end: 201701
  5. RANITIDINE HYDROCHLORIDE. [Suspect]
     Active Substance: RANITIDINE HYDROCHLORIDE
     Indication: DYSPEPSIA
     Dosage: PLAINTIFF WILL SUPPLEMENT OVER THE COUNTER
     Route: 065
     Dates: start: 200401, end: 201701
  6. ZANTAC [Suspect]
     Active Substance: RANITIDINE HYDROCHLORIDE
     Indication: DYSPEPSIA
     Dosage: 150 MG,(3?4 TIMES A WEEK)
     Route: 065
     Dates: start: 199501, end: 201701
  7. RANITIDINE. [Suspect]
     Active Substance: RANITIDINE
     Indication: DYSPEPSIA
     Dosage: 75 MG BOTH (3?4 TIMES A WEEK)
     Route: 065
     Dates: start: 200401, end: 201701
  8. RANITIDINE. [Suspect]
     Active Substance: RANITIDINE
     Dosage: 150 MG(3?4 TIMES A WEEK)
     Route: 065
     Dates: start: 200401, end: 201701
  9. RANITIDINE. [Suspect]
     Active Substance: RANITIDINE
     Dosage: 150 MG BOTH (3?4 TIMES A WEEK)
     Route: 065
     Dates: start: 200401, end: 201701
  10. ZANTAC [Suspect]
     Active Substance: RANITIDINE HYDROCHLORIDE
     Indication: DYSPEPSIA
     Dosage: 75 MG BOTH (3?4 TIMES A WEEK)
     Route: 065
     Dates: start: 199501, end: 201701
  11. RANITIDINE. [Suspect]
     Active Substance: RANITIDINE
     Indication: DYSPEPSIA
     Dosage: 75 MG BOTH (3?4 TIMES A WEEK)
     Route: 065
     Dates: start: 200401, end: 201701
  12. RANITIDINE. [Suspect]
     Active Substance: RANITIDINE
     Indication: DYSPEPSIA
     Dosage: 75 MG BOTH (3?4 TIMES A WEEK)
     Route: 065
     Dates: start: 200401, end: 201701
  13. RANITIDINE CAPSULE [Suspect]
     Active Substance: RANITIDINE
     Indication: DYSPEPSIA
     Dosage: 75 MG BOTH (3?4 TIMES A WEEK)
     Route: 065
     Dates: start: 200401, end: 201701

REACTIONS (2)
  - Pancreatic carcinoma [Unknown]
  - Bile duct cancer [Unknown]
